FAERS Safety Report 4702679-3 (Version None)
Quarter: 2005Q2

REPORT INFORMATION
  Report Type: 
  Country: None (occurrence: None)
  Receive Date: 20050629
  Receipt Date: 20050128
  Transmission Date: 20051028
  Serious: No
  Sender: FDA-Public Use
  Company Number: US-GLAXOSMITHKLINE-A0542846A

PATIENT
  Age: 25 Year
  Sex: Female

DRUGS (3)
  1. ZYBAN [Suspect]
     Dosage: 150MG TWICE PER DAY
     Route: 048
     Dates: start: 20050101, end: 20050128
  2. NICORETTE [Concomitant]
  3. ORAL CONTRACEPTIVE [Concomitant]

REACTIONS (4)
  - ERYTHEMA [None]
  - OEDEMA [None]
  - RASH [None]
  - RASH MACULO-PAPULAR [None]
